FAERS Safety Report 6952804-9 (Version None)
Quarter: 2010Q3

REPORT INFORMATION
  Report Type: 
  Country: None (occurrence: None)
  Receive Date: 20100829
  Receipt Date: 20100517
  Transmission Date: 20110219
  Serious: No
  Sender: FDA-Public Use
  Company Number: US-ABBOTT-10P-163-0645925-00

PATIENT
  Sex: Male
  Weight: 78.088 kg

DRUGS (2)
  1. NIASPAN [Suspect]
     Indication: HIGH DENSITY LIPOPROTEIN
     Dates: start: 20091029, end: 20091201
  2. LOVASTATIN [Suspect]
     Indication: PRODUCT USED FOR UNKNOWN INDICATION
     Dates: start: 20091029, end: 20091201

REACTIONS (5)
  - CHILLS [None]
  - OEDEMA PERIPHERAL [None]
  - RASH [None]
  - SKIN FISSURES [None]
  - URTICARIA [None]
